FAERS Safety Report 5374961-0 (Version None)
Quarter: 2007Q2

REPORT INFORMATION
  Report Type: 
  Country: None (occurrence: None)
  Receive Date: 20070629
  Receipt Date: 20070620
  Transmission Date: 20071010
  Serious: Yes (Hospitalization)
  Sender: FDA-Public Use
  Company Number: US-ELI_LILLY_AND_COMPANY-US200609005467

PATIENT
  Age: 51 Year
  Sex: Male
  Weight: 101.59 kg

DRUGS (9)
  1. ZYPREXA [Suspect]
     Dosage: 5 MG, UNK
     Dates: start: 19970817
  2. ZYPREXA [Suspect]
     Dosage: 2.5 MG, UNK
  3. ZYPREXA [Suspect]
     Dosage: 10 MG, UNK
  4. SEROQUEL [Concomitant]
     Dates: start: 20010102
  5. LITHIUM [Concomitant]
     Dates: start: 19960101
  6. WELLBUTRIN [Concomitant]
     Dates: start: 19880101
  7. PROZAC [Concomitant]
     Dates: start: 19840101
  8. TENORMIN [Concomitant]
     Dates: start: 20000217
  9. INDERAL [Concomitant]
     Dates: start: 20000217

REACTIONS (7)
  - ANAEMIA [None]
  - BLOOD TRIGLYCERIDES INCREASED [None]
  - DIABETES MELLITUS NON-INSULIN-DEPENDENT [None]
  - GLUCOSE URINE PRESENT [None]
  - HYPERGLYCAEMIA [None]
  - METABOLIC DISORDER [None]
  - OBESITY [None]
